FAERS Safety Report 7496472-9 (Version None)
Quarter: 2011Q2

REPORT INFORMATION
  Report Type: 
  Country: None (occurrence: None)
  Receive Date: 20110523
  Receipt Date: 20110511
  Transmission Date: 20111010
  Serious: Yes (Hospitalization, Other)
  Sender: FDA-Public Use
  Company Number: JP-ROCHE-437779

PATIENT
  Age: 54 Year
  Sex: Female

DRUGS (30)
  1. MYCOPHENOLATE MOFETIL [Suspect]
     Route: 048
     Dates: start: 20040616, end: 20051213
  2. MYCOPHENOLATE MOFETIL [Suspect]
     Route: 048
     Dates: start: 20041214, end: 20050105
  3. MYCOPHENOLATE MOFETIL [Suspect]
     Route: 048
     Dates: start: 20060511
  4. THYRADIN [Concomitant]
     Route: 048
     Dates: start: 20040702
  5. FERROUS CITRATE [Concomitant]
     Route: 048
     Dates: start: 20040928
  6. CLARUTE [Concomitant]
     Route: 048
     Dates: start: 20060526
  7. MYCOPHENOLATE MOFETIL [Suspect]
     Route: 048
     Dates: start: 20040523, end: 20040526
  8. PREDNISOLONE [Concomitant]
     Dosage: 10-60MG
     Route: 048
     Dates: start: 20040528
  9. ALEVIATIN [Concomitant]
     Route: 048
     Dates: start: 20040607, end: 20040714
  10. OMEPRAZOLE [Concomitant]
     Route: 048
     Dates: start: 20040527
  11. DIFLUCAN [Concomitant]
     Route: 048
     Dates: start: 20040602, end: 20050225
  12. PROGRAF [Concomitant]
     Dosage: 2-7MG
     Route: 048
     Dates: start: 20040608
  13. MAGNESIUM SULFATE [Concomitant]
     Route: 048
     Dates: start: 20040928
  14. MYCOPHENOLATE MOFETIL [Suspect]
     Route: 048
     Dates: start: 20040527, end: 20040528
  15. MYCOPHENOLATE MOFETIL [Suspect]
     Route: 048
     Dates: start: 20040529, end: 20040615
  16. NEORAL [Suspect]
     Dosage: 50-220 MG
     Route: 048
     Dates: start: 20040522, end: 20040608
  17. LIPITOR [Concomitant]
     Route: 048
     Dates: start: 20040531
  18. POVIDONE IODINE [Concomitant]
     Dosage: OROPHARYNGEAL, EXTERNAL PREPARATION
  19. BUFFERIN [Concomitant]
     Route: 048
     Dates: start: 20040526
  20. SULFAMETHOXAZOLE [Concomitant]
     Route: 048
     Dates: start: 20040527
  21. NORVASC [Concomitant]
     Route: 048
     Dates: start: 20040603
  22. ZOVIRAX [Concomitant]
     Route: 048
     Dates: start: 20040623
  23. BONALON [Concomitant]
     Route: 048
     Dates: start: 20040803
  24. PREDNISOLONE [Concomitant]
     Route: 048
     Dates: start: 20051104, end: 20060425
  25. ASPIRIN [Concomitant]
     Route: 048
  26. AMLODIPINE [Concomitant]
     Route: 048
  27. SOLU-MEDROL [Concomitant]
     Dosage: 70-375 MG
     Route: 042
     Dates: start: 20040521, end: 20040527
  28. SLOW-K [Concomitant]
     Route: 048
  29. MYCOPHENOLATE MOFETIL [Suspect]
     Route: 048
     Dates: start: 20050115, end: 20060510
  30. OMEPRAZOLE [Concomitant]
     Route: 048

REACTIONS (23)
  - NAUSEA [None]
  - LUNG INFILTRATION [None]
  - HAEMATOMA [None]
  - ABDOMINAL PAIN [None]
  - LUMBAR VERTEBRAL FRACTURE [None]
  - HAEMORRHAGIC DIATHESIS [None]
  - SUBILEUS [None]
  - CONTUSION [None]
  - NASOPHARYNGITIS [None]
  - GASTRIC POLYPS [None]
  - GENITAL RASH [None]
  - RASH [None]
  - POSTERIOR REVERSIBLE ENCEPHALOPATHY SYNDROME [None]
  - HERPES ZOSTER [None]
  - FALL [None]
  - WHITE BLOOD CELL COUNT DECREASED [None]
  - PSEUDOMONAS TEST POSITIVE [None]
  - ECZEMA [None]
  - FLATULENCE [None]
  - GASTROINTESTINAL HYPERMOTILITY [None]
  - PNEUMONIA [None]
  - PYREXIA [None]
  - GASTROINTESTINAL MOTILITY DISORDER [None]
